FAERS Safety Report 17726368 (Version 1)
Quarter: 2020Q2

REPORT INFORMATION
  Report Type: Spontaneous
  Country: CN (occurrence: CN)
  Receive Date: 20200430
  Receipt Date: 20200430
  Transmission Date: 20200714
  Serious: Yes (Other)
  Sender: FDA-Public Use
  Company Number: CN-SUN PHARMACEUTICAL INDUSTRIES LTD-2020R1-245000

PATIENT
  Age: 44 Year
  Sex: Male

DRUGS (7)
  1. METOPROLOL. [Suspect]
     Active Substance: METOPROLOL
     Indication: HYPERTENSION
     Dosage: 47.5 MILLIGRAM, QD
     Route: 065
     Dates: start: 201809
  2. SACUBITRIL [Suspect]
     Active Substance: SACUBITRIL
     Indication: HYPERTENSION
     Dosage: 100 MILLIGRAM, BID
     Route: 065
  3. VALSARTAN. [Suspect]
     Active Substance: VALSARTAN
     Indication: HYPERTENSION
     Dosage: 100 MILLIGRAM, BID
     Route: 065
     Dates: start: 201809
  4. FUROSEMIDE. [Suspect]
     Active Substance: FUROSEMIDE
     Indication: HYPERTENSION
     Dosage: 20 MILLIGRAM, QD
     Route: 065
     Dates: start: 201809
  5. SPIRONOLACTONE. [Suspect]
     Active Substance: SPIRONOLACTONE
     Dosage: 200 MILLIGRAM, QD
     Route: 065
     Dates: start: 201903
  6. SPIRONOLACTONE. [Suspect]
     Active Substance: SPIRONOLACTONE
     Indication: HYPERTENSION
     Dosage: 40 MILLIGRAM, QD
     Route: 065
     Dates: start: 201809
  7. SPIRONOLACTONE. [Suspect]
     Active Substance: SPIRONOLACTONE
     Dosage: 40 MILLIGRAM, QD
     Route: 065
     Dates: start: 201905

REACTIONS (2)
  - Adrenal adenoma [Recovering/Resolving]
  - Congestive cardiomyopathy [Recovering/Resolving]
